FAERS Safety Report 4955449-5 (Version None)
Quarter: 2006Q1

REPORT INFORMATION
  Report Type: 
  Country: None (occurrence: None)
  Receive Date: 20060127
  Receipt Date: 20050711
  Transmission Date: 20060701
  Serious: Yes (Death)
  Sender: FDA-Public Use
  Company Number: 05-07-1214

PATIENT
  Age: 76 Year
  Sex: Female

DRUGS (3)
  1. CLOZAPINE [Suspect]
     Indication: ANXIETY
     Dosage: 75-400MG QD, ORAL
     Route: 048
     Dates: start: 19980901, end: 20050601
  2. CLOZAPINE [Suspect]
     Indication: NEUROSIS
     Dosage: 75-400MG QD, ORAL
     Route: 048
     Dates: start: 19980901, end: 20050601
  3. CLOZAPINE [Suspect]
     Indication: SCHIZOPHRENIA
     Dosage: 75-400MG QD, ORAL
     Route: 048
     Dates: start: 19980901, end: 20050601

REACTIONS (1)
  - UNEVALUABLE EVENT [None]
